FAERS Safety Report 5600530-0 (Version None)
Quarter: 2008Q1

REPORT INFORMATION
  Report Type: 
  Country: None (occurrence: None)
  Receive Date: 20080123
  Receipt Date: 20080109
  Transmission Date: 20080703
  Serious: Yes (Life-Threatening, Other)
  Sender: FDA-Public Use
  Company Number: AU-ROXANE LABORATORIES, INC-2008-DE-00136GD

PATIENT
  Age: 52 Year
  Sex: Female

DRUGS (12)
  1. MORPHINE [Suspect]
     Indication: NEURALGIA
     Route: 030
  2. MORPHINE [Suspect]
     Route: 051
  3. OXYCONTIN [Suspect]
     Indication: NEURALGIA
  4. OXYCONTIN [Suspect]
  5. VALPROATE SODIUM [Suspect]
     Indication: NEURALGIA
  6. AMITRIPTYLINE HCL [Suspect]
     Indication: NEURALGIA
  7. GABAPENTIN [Suspect]
     Indication: NEURALGIA
  8. LIDOCAINE [Suspect]
     Indication: NEURALGIA
     Dosage: CONTINUOUS INFUSION OF 0.5 - 0.75 MG/KG/H
     Route: 051
  9. METFORMIN HCL [Concomitant]
     Indication: TYPE 2 DIABETES MELLITUS
  10. GLYBURIDE [Concomitant]
     Indication: TYPE 2 DIABETES MELLITUS
  11. SIMVASTATIN [Concomitant]
     Indication: HYPERLIPIDAEMIA
  12. RAMIPRIL [Concomitant]
     Indication: HYPERTENSION

REACTIONS (8)
  - CARDIAC ARREST [None]
  - DRUG INEFFECTIVE [None]
  - DRUG INTERACTION [None]
  - HYPOTENSION [None]
  - LOSS OF CONSCIOUSNESS [None]
  - RESPIRATORY FAILURE [None]
  - SINUS TACHYCARDIA [None]
  - SOMNOLENCE [None]
